FAERS Safety Report 7638353-3 (Version None)
Quarter: 2011Q3

REPORT INFORMATION
  Report Type: 
  Country: None (occurrence: None)
  Receive Date: 20110720
  Receipt Date: 20110706
  Transmission Date: 20111222
  Serious: Yes (Other)
  Sender: FDA-Public Use
  Company Number: 2011AP001197

PATIENT
  Age: 53 Year
  Sex: Male

DRUGS (2)
  1. CITALOPRAM (CITALOPRAM) [Suspect]
     Indication: PRODUCT USED FOR UNKNOWN INDICATION
  2. TERBINAFINE HCL [Suspect]
     Indication: ONYCHOMYCOSIS
     Dosage: 250 MG; QD PO
     Route: 048
     Dates: start: 20110503, end: 20110517

REACTIONS (2)
  - DRUG INTERACTION [None]
  - DEPRESSION [None]
